FAERS Safety Report 17828422 (Version 6)
Quarter: 2021Q2

REPORT INFORMATION
  Report Type: Report from Study
  Country: US (occurrence: US)
  Receive Date: 20200527
  Receipt Date: 20210512
  Transmission Date: 20210717
  Serious: No
  Sender: FDA-Public Use
  Company Number: NVSC2020US146096

PATIENT
  Age: 65 Year
  Sex: Female

DRUGS (1)
  1. ENTRESTO [Suspect]
     Active Substance: SACUBITRIL\VALSARTAN
     Indication: PRODUCT USED FOR UNKNOWN INDICATION
     Dosage: 50 MG, BID (24/26 MG)
     Route: 048
     Dates: start: 202003

REACTIONS (9)
  - Food poisoning [Recovered/Resolved]
  - Decreased appetite [Unknown]
  - Product dose omission issue [Unknown]
  - Frustration tolerance decreased [Unknown]
  - Gastrooesophageal reflux disease [Recovering/Resolving]
  - Depression [Recovered/Resolved]
  - Peripheral swelling [Unknown]
  - Thyroiditis [Unknown]
  - Blood pressure abnormal [Unknown]

NARRATIVE: CASE EVENT DATE: 20200718
